FAERS Safety Report 11242448 (Version 2)
Quarter: 2015Q3

REPORT INFORMATION
  Report Type: Spontaneous
  Country: IT (occurrence: IT)
  Receive Date: 20150707
  Receipt Date: 20150716
  Transmission Date: 20151125
  Serious: Yes (Hospitalization)
  Sender: FDA-Public Use
  Company Number: IT-ROCHE-1603206

PATIENT
  Age: 40 Year
  Sex: Male

DRUGS (5)
  1. RIVOTRIL [Suspect]
     Active Substance: CLONAZEPAM
     Indication: PRODUCT USED FOR UNKNOWN INDICATION
     Dosage: 2 MG TABLETS- 20 TABLETS
     Route: 048
     Dates: start: 20150701, end: 20150701
  2. TRITTICO [Suspect]
     Active Substance: TRAZODONE HYDROCHLORIDE
     Indication: PRODUCT USED FOR UNKNOWN INDICATION
     Dosage: 150 MG PROLONGED-RELEASE TABLETS- 20 SCORED TABLET
     Route: 048
     Dates: start: 20150701, end: 20150701
  3. RISPERDAL [Suspect]
     Active Substance: RISPERIDONE
     Indication: PRODUCT USED FOR UNKNOWN INDICATION
     Dosage: 2 MG FILM-COATED TABLETS-60 TABLETS
     Route: 048
     Dates: start: 20150701, end: 20150701
  4. NOZINAN [Suspect]
     Active Substance: LEVOMEPROMAZINE
     Indication: PRODUCT USED FOR UNKNOWN INDICATION
     Dosage: 25 MG FILM-COATED TABLETS-20 TABLETS
     Route: 048
     Dates: start: 20150701, end: 20150701
  5. ZOLOFT [Suspect]
     Active Substance: SERTRALINE HYDROCHLORIDE
     Indication: PRODUCT USED FOR UNKNOWN INDICATION
     Dosage: 50 MG FILM-COATED TABLETS 30 SCORED TABLETS
     Route: 048
     Dates: start: 20150701, end: 20150701

REACTIONS (2)
  - Intentional overdose [Unknown]
  - Sopor [Recovering/Resolving]

NARRATIVE: CASE EVENT DATE: 20150701
